FAERS Safety Report 5856135-X (Version None)
Quarter: 2008Q3

REPORT INFORMATION
  Report Type: 
  Country: None (occurrence: None)
  Receive Date: 20080818
  Receipt Date: 20080618
  Transmission Date: 20090109
  Serious: No
  Sender: FDA-Public Use
  Company Number: WAES 0806USA03778

PATIENT
  Age: 42 Year
  Sex: Female

DRUGS (2)
  1. JANUVIA [Suspect]
     Indication: TYPE 2 DIABETES MELLITUS
     Dosage: 100 MG/DAILY/PO
     Route: 047
     Dates: start: 20080606
  2. POTASSIUM (UNSPECIFIED) [Concomitant]

REACTIONS (3)
  - HEADACHE [None]
  - NASAL CONGESTION [None]
  - OROPHARYNGEAL PAIN [None]
